FAERS Safety Report 5209496-9 (Version None)
Quarter: 2007Q1

REPORT INFORMATION
  Report Type: 
  Country: None (occurrence: None)
  Receive Date: 20070111
  Receipt Date: 20070103
  Transmission Date: 20070707
  Serious: Yes (Hospitalization)
  Sender: FDA-Public Use
  Company Number: 2007-00009

PATIENT
  Age: 48 Year
  Sex: Female

DRUGS (2)
  1. TRELSTAR [Suspect]
     Indication: OVARIAN DISORDER
     Dates: start: 20061031, end: 20061128
  2. EXEMESTANE [Suspect]
     Indication: OVARIAN DISORDER
     Dates: start: 20061031, end: 20061212

REACTIONS (7)
  - DIZZINESS [None]
  - DYSPHAGIA [None]
  - ERYTHEMA MULTIFORME [None]
  - FEELING HOT [None]
  - RASH [None]
  - SCAB [None]
  - SKIN EXFOLIATION [None]
